FAERS Safety Report 23093995 (Version 1)
Quarter: 2023Q4

REPORT INFORMATION
  Report Type: Spontaneous
  Country: PL (occurrence: PL)
  Receive Date: 20231023
  Receipt Date: 20231023
  Transmission Date: 20240110
  Serious: Yes (Death, Hospitalization, Other)
  Sender: FDA-Public Use
  Company Number: PL-POLPHARMA-060757

PATIENT
  Age: 64 Year
  Sex: Female

DRUGS (6)
  1. METOPROLOL [Concomitant]
     Active Substance: METOPROLOL
     Indication: Product used for unknown indication
     Dosage: 1 X 50 MG
     Route: 065
  2. PROPAFENONE [Concomitant]
     Active Substance: PROPAFENONE
     Indication: Product used for unknown indication
     Dosage: 2 X 150 MG
     Route: 065
  3. ASPIRIN\DIPHENHYDRAMINE [Interacting]
     Active Substance: ASPIRIN\DIPHENHYDRAMINE
     Indication: Arthralgia
     Dosage: AT NIGHT
     Route: 065
  4. OMEPRAZOLE [Interacting]
     Active Substance: OMEPRAZOLE
     Indication: Abdominal pain upper
     Dosage: 40 MG/24 H
     Route: 065
  5. ACETAMINOPHEN [Interacting]
     Active Substance: ACETAMINOPHEN
     Indication: Arthralgia
     Dosage: 1000 MG 2X/24 H, DURING THE DAY
     Route: 065
  6. WARFARIN [Interacting]
     Active Substance: WARFARIN
     Indication: Product used for unknown indication
     Dosage: IN VARIABLE DOSES, ADJUSTED ACCORDING TO INR VALUES
     Route: 065

REACTIONS (3)
  - Loss of consciousness [Fatal]
  - Subarachnoid haemorrhage [Fatal]
  - Labelled drug-drug interaction medication error [Unknown]
